FAERS Safety Report 6489990-3 (Version None)
Quarter: 2009Q4

REPORT INFORMATION
  Report Type: 
  Country: None (occurrence: None)
  Receive Date: 20091209
  Receipt Date: 20091209
  Transmission Date: 20100525
  Serious: No
  Sender: FDA-Public Use
  Company Number: None

PATIENT
  Age: 47 Year
  Sex: Female
  Weight: 68.0396 kg

DRUGS (1)
  1. COLD REMEDY ZAVORS [Suspect]
     Dosage: Q3 HOURS 6 DAYS
     Dates: start: 20091029, end: 20091103

REACTIONS (3)
  - GLOSSITIS [None]
  - GLOSSODYNIA [None]
  - HYPOGEUSIA [None]
